FAERS Safety Report 6748038-3 (Version None)
Quarter: 2010Q2

REPORT INFORMATION
  Report Type: 
  Country: None (occurrence: None)
  Receive Date: 20100531
  Receipt Date: 20100517
  Transmission Date: 20101027
  Serious: Yes (Other)
  Sender: FDA-Public Use
  Company Number: US-ASTRAZENECA-2009SE16399

PATIENT
  Sex: Male

DRUGS (7)
  1. SEROQUEL [Suspect]
     Route: 048
     Dates: start: 20060103
  2. GEODON [Concomitant]
     Dates: start: 20050125
  3. TRAZODONE HCL [Concomitant]
     Route: 048
     Dates: start: 20050325
  4. ABILIFY [Concomitant]
     Route: 048
     Dates: start: 20050325
  5. BENZTROPINE MESYLATE [Concomitant]
     Route: 048
     Dates: start: 20050325
  6. ENALAPRIL [Concomitant]
     Dosage: 10 MG TO 20 MG
     Route: 048
     Dates: start: 20050509
  7. DEPAKOTE ER [Concomitant]
     Dates: start: 20060103

REACTIONS (2)
  - DIABETES MELLITUS [None]
  - DIABETIC NEPHROPATHY [None]
